FAERS Safety Report 12777489 (Version 1)
Quarter: 2016Q3

REPORT INFORMATION
  Report Type: Spontaneous
  Country: US (occurrence: US)
  Receive Date: 20160924
  Receipt Date: 20160924
  Transmission Date: 20161109
  Serious: No
  Sender: FDA-Public Use
  Company Number: US-TEVA-609038USA

PATIENT
  Age: 50 Year
  Sex: Female
  Weight: 71.73 kg

DRUGS (1)
  1. CLONAZEPAM. [Suspect]
     Active Substance: CLONAZEPAM
     Indication: ANXIETY
     Dates: start: 20151111, end: 20151111

REACTIONS (3)
  - Dizziness [Unknown]
  - Confusional state [Unknown]
  - Somnolence [Unknown]

NARRATIVE: CASE EVENT DATE: 20151111
